FAERS Safety Report 5836095-8 (Version None)
Quarter: 2008Q3

REPORT INFORMATION
  Report Type: 
  Country: None (occurrence: None)
  Receive Date: 20080806
  Receipt Date: 20080731
  Transmission Date: 20090109
  Serious: Yes (Other)
  Sender: FDA-Public Use
  Company Number: JP-PFIZER INC-2008064858

PATIENT

DRUGS (2)
  1. GABAPEN [Suspect]
     Route: 048
  2. PHENYTOIN [Concomitant]

REACTIONS (1)
  - EPILEPSY [None]
